FAERS Safety Report 5969587-1 (Version None)
Quarter: 2008Q4

REPORT INFORMATION
  Report Type: 
  Country: None (occurrence: None)
  Receive Date: 20081126
  Receipt Date: 20080918
  Transmission Date: 20090506
  Serious: No
  Sender: FDA-Public Use
  Company Number: US-ABBOTT-08P-163-0477228-00

PATIENT
  Sex: Female

DRUGS (5)
  1. SIMCOR [Suspect]
     Indication: HYPERCHOLESTEROLAEMIA
  2. NAPROXEN SODIUM [Concomitant]
     Indication: DRUG USE FOR UNKNOWN INDICATION
     Route: 048
  3. AMOXICILLIN [Concomitant]
     Indication: TOOTH EXTRACTION
     Route: 048
  4. VICODIN [Concomitant]
     Indication: TOOTHACHE
     Route: 048
  5. UNKNOWN MUSCLE RELAXER [Concomitant]
     Indication: PAIN
     Route: 048

REACTIONS (1)
  - FLUSHING [None]
